FAERS Safety Report 13045345 (Version 1)
Quarter: 2016Q4

REPORT INFORMATION
  Report Type: Spontaneous
  Country: TW (occurrence: TW)
  Receive Date: 20161220
  Receipt Date: 20161220
  Transmission Date: 20170207
  Serious: Yes (Death, Other)
  Sender: FDA-Public Use
  Company Number: TW-BRISTOL-MYERS SQUIBB COMPANY-BMS-2016-093313

PATIENT

DRUGS (2)
  1. YERVOY [Suspect]
     Active Substance: IPILIMUMAB
     Indication: NON-SMALL CELL LUNG CANCER
     Route: 065
  2. OPDIVO [Suspect]
     Active Substance: NIVOLUMAB
     Indication: NON-SMALL CELL LUNG CANCER
     Route: 065

REACTIONS (7)
  - Haemorrhage [Fatal]
  - Neuropathy peripheral [Not Recovered/Not Resolved]
  - Pneumonia [Fatal]
  - Fatigue [Unknown]
  - Blood cortisol decreased [Unknown]
  - Hypothyroidism [Recovering/Resolving]
  - Blood corticotrophin decreased [Unknown]
